FAERS Safety Report 4358920-2 (Version None)
Quarter: 2004Q2

REPORT INFORMATION
  Report Type: 
  Country: None (occurrence: None)
  Receive Date: 20040511
  Receipt Date: 20040426
  Transmission Date: 20050107
  Serious: Yes (Hospitalization)
  Sender: FDA-Public Use
  Company Number: S04-SWI-01001-01

PATIENT
  Age: 39 Year
  Sex: Female
  Weight: 60 kg

DRUGS (2)
  1. CIPRALEX (ESCITALOPRAM) [Suspect]
     Indication: DEPRESSION
     Dosage: 5 MG QD PO
     Route: 048
     Dates: start: 20040210, end: 20040213
  2. CIPRALEX (ESCITALOPRAM) [Suspect]
     Indication: DEPRESSION
     Dosage: 10 MG QD PO
     Route: 048
     Dates: start: 20040213, end: 20040216

REACTIONS (6)
  - BRAIN OEDEMA [None]
  - DELIRIUM [None]
  - FLUID RETENTION [None]
  - INAPPROPRIATE ANTIDIURETIC HORMONE SECRETION [None]
  - POLYDIPSIA [None]
  - STARING [None]
